FAERS Safety Report 10240664 (Version 1)
Quarter: 2014Q1

REPORT INFORMATION
  Report Type: Spontaneous
  Country: US (occurrence: None)
  Receive Date: 20140306
  Receipt Date: 20140306
  Transmission Date: 20141002
  Serious: Yes (Other)
  Sender: FDA-Public Use
  Company Number: 163-21880-13034789

PATIENT
  Age: 77 Year
  Sex: Female
  Weight: 70.31 kg

DRUGS (21)
  1. REVLIMID (LENALIDOMIDE) (CAPSULES) [Suspect]
     Indication: CHRONIC LYMPHOCYTIC LEUKAEMIA
     Route: 048
     Dates: start: 201212
  2. TYLENOL (PARACETAMOL) (UNKNOWN) [Concomitant]
  3. DIPHENHYDRAMINE (DIPHENHYDRAMINE) (UNKNOWN) [Concomitant]
  4. RITUXAN (RITUXIMAB) (UNKNOWN) [Concomitant]
  5. ALLOPURINOL (ALLOPURINOL) (TABLETS) [Concomitant]
  6. BABY ASPIRIN (ACETYLSALICYLIC ACID) (TABLETS) [Concomitant]
  7. GLYBURIDE (GLIBENCLAMIDE) (TABLETS) [Concomitant]
  8. AMLODIPINE (AMLODIPINE) (TABLETS) [Concomitant]
  9. CLEMASTINE-1 (CLEMASTINE) (TABLETS) [Concomitant]
  10. HYDROCORTISONE (HYDROCORTISONE) (CREAM) [Concomitant]
  11. AVELOX (MOXIFLOXACIN HYDROCHLORIDE) (TABLETS) [Concomitant]
  12. ZOFRAN (ONDANSETRON HYDROCHLORIDE) (TABLETS) [Concomitant]
  13. BUMETANIDE (BUMETANIDE) (TABLETS) [Concomitant]
  14. SYNTHROID (LEVOTHYROXINE SODIUM) (TABLETS) [Concomitant]
  15. POTASSIUM BICARB-CITRIC (KALTRANS /OLD FORM/) (TABLETS) [Concomitant]
  16. METFORMIN (METFORMIN) (TABLETS) [Concomitant]
  17. ZANTAC (RANITIDINE HYDROCHLORIDE) (TABLETS) [Concomitant]
  18. LORTAB (VICODIN) (TABLETS) [Concomitant]
  19. VIBRAMYCIN (DOXYCYCLINE HYCLATE) (CAPSULES) [Concomitant]
  20. ALPRAZOLAM (ALPRAZOLAM) (TABLETS) [Concomitant]
  21. LEUKINE (SARGRAMOSTIM) (UNKNOWN) [Concomitant]

REACTIONS (2)
  - Pancytopenia [None]
  - Rash [None]
